FAERS Safety Report 6832161-9 (Version None)
Quarter: 2010Q3

REPORT INFORMATION
  Report Type: 
  Country: None (occurrence: None)
  Receive Date: 20100712
  Receipt Date: 20100701
  Transmission Date: 20110219
  Serious: Yes (Other)
  Sender: FDA-Public Use
  Company Number: US-B.I. PHARMACEUTICALS,INC./RIDGEFIELD-2010-BP-05905PF

PATIENT
  Sex: Female

DRUGS (17)
  1. SPIRIVA [Suspect]
     Indication: CHRONIC OBSTRUCTIVE PULMONARY DISEASE
     Dosage: 18 MG
     Route: 055
     Dates: start: 20040101
  2. ZYRTEC [Concomitant]
     Dosage: 10 MG
     Route: 048
     Dates: start: 20061101
  3. NEURONTIN [Concomitant]
     Dosage: 300 MG
     Route: 048
     Dates: start: 20061101
  4. REVATIO [Concomitant]
     Dosage: 60 MG
     Route: 048
     Dates: start: 20070201
  5. FORTEO [Concomitant]
  6. SPIRONOLACTONE [Concomitant]
     Route: 048
     Dates: start: 20070901
  7. HERBAL COQ10 [Concomitant]
     Route: 048
     Dates: start: 20080501
  8. ZOCOR [Concomitant]
     Route: 048
     Dates: start: 20070901
  9. ALBUTEROL [Concomitant]
     Route: 055
     Dates: start: 20061001
  10. ADVAIR DISKUS 100/50 [Concomitant]
     Route: 055
     Dates: start: 20061001
  11. CITRACAL [Concomitant]
     Route: 048
     Dates: start: 20080501
  12. LEVEMIR [Concomitant]
     Route: 058
     Dates: start: 20080501
  13. LASIX [Concomitant]
     Route: 048
     Dates: start: 20070901
  14. NEXIUM [Concomitant]
     Route: 048
     Dates: start: 20070201
  15. ACTONEL [Concomitant]
     Route: 048
     Dates: start: 20061001
  16. HUMALOG [Concomitant]
     Route: 058
     Dates: start: 20070201
  17. ATENOLOL [Concomitant]
     Route: 048
     Dates: start: 20061001

REACTIONS (1)
  - PULMONARY HYPERTENSION [None]
